FAERS Safety Report 6996682-0 (Version None)
Quarter: 2010Q3

REPORT INFORMATION
  Report Type: 
  Country: None (occurrence: None)
  Receive Date: 20100918
  Receipt Date: 20091013
  Transmission Date: 20110219
  Serious: Yes (Other)
  Sender: FDA-Public Use
  Company Number: US-WYE-H09853609

PATIENT
  Sex: Female
  Weight: 73.55 kg

DRUGS (5)
  1. PRISTIQ [Suspect]
     Indication: DEPRESSION
     Route: 048
     Dates: start: 20090101, end: 20090101
  2. PRISTIQ [Suspect]
     Dosage: UNKNOWN
     Route: 048
     Dates: start: 20090201, end: 20090101
  3. PRISTIQ [Suspect]
     Route: 048
     Dates: start: 20090101
  4. ETODOLAC [Concomitant]
     Indication: PAIN
     Route: 048
     Dates: start: 20090511
  5. ZESTRIL [Concomitant]
     Indication: HYPERTENSION
     Dosage: UNKNOWN
     Dates: end: 20090501

REACTIONS (2)
  - CONDITION AGGRAVATED [None]
  - HYPERTENSION [None]
